FAERS Safety Report 21023246 (Version 3)
Quarter: 2022Q3

REPORT INFORMATION
  Report Type: Report from Study
  Country: CA (occurrence: CA)
  Receive Date: 20220629
  Receipt Date: 20220928
  Transmission Date: 20221026
  Serious: Yes (Hospitalization, Other)
  Sender: FDA-Public Use
  Company Number: CA-OTSUKA-2022_001316

PATIENT
  Sex: Male
  Weight: 92.9 kg

DRUGS (2)
  1. CEDAZURIDINE\DECITABINE [Suspect]
     Active Substance: CEDAZURIDINE\DECITABINE
     Indication: Myelodysplastic syndrome
     Dosage: 135 MG (35MG DECITABINE AND 100MG CEDAZURIDINE) 5 TABLET CYCLE
     Route: 065
     Dates: start: 20211113
  2. CEDAZURIDINE\DECITABINE [Suspect]
     Active Substance: CEDAZURIDINE\DECITABINE
     Dosage: 135 MG (35MG DECITABINE AND 100MG CEDAZURIDINE) 3 TABLET CYCLE
     Route: 065
     Dates: end: 20220921

REACTIONS (9)
  - Cerebrovascular accident [Unknown]
  - Red blood cell transfusion [Unknown]
  - Platelet count decreased [Unknown]
  - Discomfort [Unknown]
  - Eastern Cooperative Oncology Group performance status worsened [Unknown]
  - General physical health deterioration [Unknown]
  - Abdominal discomfort [Unknown]
  - Constipation [Not Recovered/Not Resolved]
  - Product use issue [Unknown]
